FAERS Safety Report 10416226 (Version 2)
Quarter: 2015Q2

REPORT INFORMATION
  Report Type: Spontaneous
  Country: DE (occurrence: DE)
  Receive Date: 20140828
  Receipt Date: 20150626
  Transmission Date: 20150821
  Serious: Yes (Congenital Anomaly, Other)
  Sender: FDA-Public Use
  Company Number: DE-UCBSA-2014009646

PATIENT
  Age: 0 Day
  Sex: Female
  Weight: 3.92 kg

DRUGS (4)
  1. KEPPRA [Suspect]
     Active Substance: LEVETIRACETAM
     Indication: JUVENILE MYOCLONIC EPILEPSY
     Dosage: 1000 MG, 2X/DAY (BID)
     Route: 064
     Dates: end: 20130607
  2. ORFIRIL [Suspect]
     Active Substance: VALPROIC ACID
     Indication: JUVENILE MYOCLONIC EPILEPSY
     Dosage: 500-0-800MG/DAY,  2X/DAY (BID)
     Route: 064
     Dates: start: 20120922, end: 20130607
  3. TOPAMAX [Suspect]
     Active Substance: TOPIRAMATE
     Indication: JUVENILE MYOCLONIC EPILEPSY
     Dosage: 75 MG, 2X/DAY (BID)
     Route: 064
     Dates: start: 201211
  4. FRISIUM [Suspect]
     Active Substance: CLOBAZAM
     Indication: JUVENILE MYOCLONIC EPILEPSY
     Dosage: UNK
     Route: 064
     Dates: start: 201209, end: 201211

REACTIONS (7)
  - Foetal exposure during pregnancy [Unknown]
  - Patent ductus arteriosus [Unknown]
  - Large for dates baby [Unknown]
  - Cleft palate [Not Recovered/Not Resolved]
  - Feeding disorder [Unknown]
  - Neonatal respiratory distress syndrome [Recovered/Resolved]
  - Premature baby [Unknown]

NARRATIVE: CASE EVENT DATE: 20130607
